FAERS Safety Report 8869354 (Version 1)
Quarter: 2012Q4

REPORT INFORMATION
  Report Type: Spontaneous
  Country: US (occurrence: None)
  Receive Date: 20121025
  Receipt Date: 20121025
  Transmission Date: 20130627
  Serious: Yes (Hospitalization)
  Sender: FDA-Public Use
  Company Number: None

PATIENT
  Age: 71 Year
  Sex: Female
  Weight: 86 kg

DRUGS (1)
  1. XARELTO [Suspect]
     Indication: DVT PROPHYLAXIS
     Dosage: 10 mg daily po
     Route: 048
     Dates: start: 20120728, end: 20120729

REACTIONS (3)
  - Catheter site haemorrhage [None]
  - Haematoma [None]
  - Haemarthrosis [None]
